FAERS Safety Report 5141555-1 (Version None)
Quarter: 2006Q4

REPORT INFORMATION
  Report Type: 
  Country: None (occurrence: None)
  Receive Date: 20061101
  Receipt Date: 20061030
  Transmission Date: 20070319
  Serious: Yes (Hospitalization)
  Sender: FDA-Public Use
  Company Number: FR-BRISTOL-MYERS SQUIBB COMPANY-13560107

PATIENT
  Age: 89 Year
  Sex: Female

DRUGS (3)
  1. COAPROVEL TABS [Suspect]
     Indication: HYPERTENSION
     Route: 048
     Dates: end: 20060720
  2. DISOPYRAMIDE [Concomitant]
     Route: 048
  3. VASTEN [Concomitant]
     Route: 048

REACTIONS (3)
  - DEHYDRATION [None]
  - DISORIENTATION [None]
  - HYPONATRAEMIA [None]
